FAERS Safety Report 10196594 (Version 1)
Quarter: 2014Q2

REPORT INFORMATION
  Report Type: Spontaneous
  Country: US (occurrence: US)
  Receive Date: 20140527
  Receipt Date: 20140527
  Transmission Date: 20141212
  Serious: Yes (Other)
  Sender: FDA-Public Use
  Company Number: US-RB-066148-14

PATIENT
  Age: 41 Year
  Sex: Female

DRUGS (1)
  1. DELSYM ADULT GRAPE LIQUID [Suspect]
     Indication: PRODUCT USED FOR UNKNOWN INDICATION
     Dosage: TOTAL TOOK 5 DOSES FROM 13-MAY-2014 TO 16-MAY-2014; LAST USED THE PRODUCT ON16-MAY-2014
     Route: 048
     Dates: start: 20140513

REACTIONS (2)
  - Eyelid oedema [Recovered/Resolved]
  - Rash [Recovered/Resolved]
